FAERS Safety Report 5135584-1 (Version None)
Quarter: 2006Q4

REPORT INFORMATION
  Report Type: 
  Country: None (occurrence: None)
  Receive Date: 20061020
  Receipt Date: 20061010
  Transmission Date: 20070319
  Serious: Yes (Other)
  Sender: FDA-Public Use
  Company Number: 2006084996

PATIENT
  Sex: Female

DRUGS (1)
  1. LIPITOR [Suspect]
     Dosage: 40 MG

REACTIONS (2)
  - LOW DENSITY LIPOPROTEIN INCREASED [None]
  - PHARMACEUTICAL PRODUCT COUNTERFEIT [None]
